FAERS Safety Report 6765135-7 (Version None)
Quarter: 2010Q2

REPORT INFORMATION
  Report Type: 
  Country: None (occurrence: None)
  Receive Date: 20100609
  Receipt Date: 20100609
  Transmission Date: 20101027
  Serious: Yes (Hospitalization)
  Sender: FDA-Public Use
  Company Number: None

PATIENT
  Age: 57 Year
  Sex: Female
  Weight: 86.1834 kg

DRUGS (1)
  1. MUCINEX DM [Suspect]
     Indication: NASOPHARYNGITIS
     Dosage: 3 PILLS IN 24 HRS.
     Dates: start: 20100325

REACTIONS (15)
  - ADVERSE REACTION [None]
  - ARRHYTHMIA [None]
  - ASTHENIA [None]
  - CHEST PAIN [None]
  - DIARRHOEA [None]
  - DIZZINESS [None]
  - DYSPNOEA [None]
  - ECONOMIC PROBLEM [None]
  - FATIGUE [None]
  - HYPOAESTHESIA [None]
  - NAUSEA [None]
  - PARAESTHESIA [None]
  - PRODUCT LABEL ISSUE [None]
  - VISION BLURRED [None]
  - VOMITING [None]
